FAERS Safety Report 11303279 (Version 1)
Quarter: 2015Q3

REPORT INFORMATION
  Report Type: Spontaneous
  Country: US (occurrence: US)
  Receive Date: 20150723
  Receipt Date: 20150723
  Transmission Date: 20151125
  Serious: No
  Sender: FDA-Public Use
  Company Number: US-JNJFOC-20141118147

PATIENT
  Age: 71 Year
  Sex: Female
  Weight: 61.24 kg

DRUGS (6)
  1. BIOTIN [Concomitant]
     Active Substance: BIOTIN
     Indication: NUTRITIONAL SUPPLEMENTATION
     Dosage: DAILY
     Route: 065
  2. VITAMIN D [Concomitant]
     Active Substance: CHOLECALCIFEROL
     Indication: NUTRITIONAL SUPPLEMENTATION
     Dosage: DAILY
     Route: 065
  3. CALCIUM [Concomitant]
     Active Substance: CALCIUM
     Indication: NUTRITIONAL SUPPLEMENTATION
     Dosage: DAILY
     Route: 065
  4. ZYRTEC [Suspect]
     Active Substance: CETIRIZINE HYDROCHLORIDE
     Route: 048
  5. ZYRTEC [Suspect]
     Active Substance: CETIRIZINE HYDROCHLORIDE
     Indication: MULTIPLE ALLERGIES
     Dosage: 1 CAPLET
     Route: 048
  6. CENTRUM NOS [Concomitant]
     Indication: NUTRITIONAL SUPPLEMENTATION
     Dosage: DAILY
     Route: 065

REACTIONS (1)
  - Therapeutic response decreased [Unknown]
